FAERS Safety Report 24686432 (Version 2)
Quarter: 2025Q2

REPORT INFORMATION
  Report Type: Spontaneous
  Country: US (occurrence: US)
  Receive Date: 20241202
  Receipt Date: 20250417
  Transmission Date: 20250716
  Serious: Yes (Life-Threatening, Hospitalization, Other)
  Sender: DR REDDYS
  Company Number: None

PATIENT
  Age: 41 Year
  Sex: Male

DRUGS (2)
  1. TACROLIMUS [Suspect]
     Active Substance: TACROLIMUS
     Indication: Immunosuppressant drug therapy
     Dosage: EXTENDED RELEASE; TACROLIMUS DOSE WAS INCREASED FOLLOWING THE FINDINGS OF REJECTION
  2. MYCOPHENOLATE MOFETIL [Concomitant]
     Active Substance: MYCOPHENOLATE MOFETIL
     Indication: Immunosuppressant drug therapy
     Dosage: 1000MG TWICE DAILY

REACTIONS (3)
  - Thrombotic microangiopathy [Recovered/Resolved]
  - Drug level above therapeutic [Recovered/Resolved]
  - Renal transplant failure [Recovered/Resolved]
